FAERS Safety Report 10781578 (Version 1)
Quarter: 2015Q1

REPORT INFORMATION
  Report Type: Spontaneous
  Country: US (occurrence: None)
  Receive Date: 20150209
  Receipt Date: 20150209
  Transmission Date: 20150721
  Serious: Yes (Other)
  Sender: FDA-Public Use
  Company Number: None

PATIENT
  Age: 69 Year
  Sex: Female
  Weight: 87 kg

DRUGS (1)
  1. LEVOFLOXACIN INJECTION IN 5% DEXTROSE [Suspect]
     Active Substance: LEVOFLOXACIN
     Indication: PNEUMONIA
     Dosage: 1 BAG
     Route: 042
     Dates: start: 20150204, end: 20150204

REACTIONS (1)
  - Infusion site erythema [None]

NARRATIVE: CASE EVENT DATE: 20150204
